FAERS Safety Report 4881841-3 (Version None)
Quarter: 2006Q1

REPORT INFORMATION
  Report Type: 
  Country: None (occurrence: None)
  Receive Date: 20060117
  Receipt Date: 20050601
  Transmission Date: 20060701
  Serious: Yes (Other)
  Sender: FDA-Public Use
  Company Number: PT-AMGEN-UK136923

PATIENT
  Sex: Male
  Weight: 56.8 kg

DRUGS (8)
  1. CINACALCET [Suspect]
     Indication: HYPERPARATHYROIDISM SECONDARY
     Route: 048
     Dates: start: 20020619, end: 20021008
  2. FOLIC ACID [Concomitant]
     Dates: start: 19971010
  3. DARBEPOETIN ALFA [Concomitant]
     Dates: start: 20020529
  4. NIFEDIPINE [Concomitant]
     Dates: start: 20020109, end: 20050504
  5. CAPTOPRIL [Concomitant]
     Dates: start: 20020109, end: 20050504
  6. ATENOLOL [Concomitant]
     Route: 048
     Dates: start: 20020109, end: 20050504
  7. CALCIUM CARBONATE [Concomitant]
     Dates: start: 20020911, end: 20040501
  8. ROCALTROL [Concomitant]
     Route: 048
     Dates: start: 20020109, end: 20040501

REACTIONS (2)
  - DISEASE PROGRESSION [None]
  - HYPERPARATHYROIDISM SECONDARY [None]
